FAERS Safety Report 13796726 (Version 2)
Quarter: 2018Q1

REPORT INFORMATION
  Report Type: Report from Study
  Country: US (occurrence: US)
  Receive Date: 20170726
  Receipt Date: 20180125
  Transmission Date: 20180508
  Serious: No
  Sender: FDA-Public Use
  Company Number: US-AMGEN-USASL2017014471

PATIENT
  Age: 66 Year
  Sex: Female

DRUGS (1)
  1. KYPROLIS [Suspect]
     Active Substance: CARFILZOMIB
     Indication: PRODUCT USED FOR UNKNOWN INDICATION
     Dosage: 33 MG, DAY ONE, TWO, EIGHT, NINE, FIFTEEN, AND SIXTEEN.
     Route: 065

REACTIONS (2)
  - Nausea [Unknown]
  - Intentional dose omission [Unknown]
